FAERS Safety Report 15453229 (Version 1)
Quarter: 2018Q4

REPORT INFORMATION
  Report Type: Report from Study
  Country: US (occurrence: US)
  Receive Date: 20181001
  Receipt Date: 20181001
  Transmission Date: 20190204
  Serious: Yes (Hospitalization)
  Sender: FDA-Public Use
  Company Number: US-PFIZER INC-2018379571

PATIENT
  Age: 71 Year
  Sex: Female
  Weight: 106 kg

DRUGS (1)
  1. PALBOCICLIB [Suspect]
     Active Substance: PALBOCICLIB
     Indication: BREAST CANCER METASTATIC
     Dosage: 100 MG, DAILY FOR 21 DAYS
     Route: 048
     Dates: start: 20180420, end: 20180504

REACTIONS (1)
  - Haematoma [Recovered/Resolved]

NARRATIVE: CASE EVENT DATE: 20180514
